FAERS Safety Report 16423568 (Version 2)
Quarter: 2019Q4

REPORT INFORMATION
  Report Type: Report from Study
  Country: None (occurrence: CO)
  Receive Date: 20190613
  Receipt Date: 20191025
  Transmission Date: 20200122
  Serious: Yes (Disabling, Other)
  Sender: FDA-Public Use
  Company Number: CO-ABBVIE-19K-036-2817197-00

PATIENT
  Age: 35 Year
  Sex: Female
  Weight: 58 kg

DRUGS (3)
  1. NUEVIDE VITAMIN SUPPLEMENT [Concomitant]
     Indication: VITAMIN B COMPLEX DEFICIENCY
     Route: 048
  2. HUMIRA [Suspect]
     Active Substance: ADALIMUMAB
     Indication: CROHN^S DISEASE
     Route: 058
     Dates: start: 20180825, end: 20190406
  3. NUEVIDE VITAMIN SUPPLEMENT [Concomitant]
     Indication: VITAMIN D DEFICIENCY

REACTIONS (6)
  - Spinal osteoarthritis [Unknown]
  - Crohn^s disease [Unknown]
  - Arthralgia [Unknown]
  - Intervertebral disc protrusion [Unknown]
  - Dislocation of vertebra [Unknown]
  - Gait disturbance [Unknown]

NARRATIVE: CASE EVENT DATE: 2019
